FAERS Safety Report 18856015 (Version 1)
Quarter: 2021Q1

REPORT INFORMATION
  Report Type: Spontaneous
  Country: US (occurrence: US)
  Receive Date: 20210206
  Receipt Date: 20210206
  Transmission Date: 20210420
  Serious: Yes (Other)
  Sender: FDA-Public Use
  Company Number: US-TEVA-2021-US-1876197

PATIENT
  Sex: Female

DRUGS (8)
  1. VITAMIN B12 [Concomitant]
     Active Substance: CYANOCOBALAMIN
  2. VITAMIN D3 [Concomitant]
     Active Substance: CHOLECALCIFEROL
  3. LEVEITRACTEA [Concomitant]
  4. COPAXONE [Suspect]
     Active Substance: GLATIRAMER ACETATE
     Indication: OSTEOPOROSIS
     Dosage: 20 MILLIGRAM DAILY;
     Route: 058
     Dates: start: 20180425
  5. DALFAMPRIDINE. [Concomitant]
     Active Substance: DALFAMPRIDINE
  6. BACLOFEN. [Concomitant]
     Active Substance: BACLOFEN
  7. TOMPIRMATE [Concomitant]
  8. FORTEO [Concomitant]
     Active Substance: TERIPARATIDE

REACTIONS (1)
  - Seizure [Not Recovered/Not Resolved]
